FAERS Safety Report 5140433-1 (Version None)
Quarter: 2006Q4

REPORT INFORMATION
  Report Type: 
  Country: None (occurrence: None)
  Receive Date: 20061024
  Receipt Date: 20061004
  Transmission Date: 20070319
  Serious: Yes (Death, Hospitalization)
  Sender: FDA-Public Use
  Company Number: FR200610000599

PATIENT
  Age: 40 Year
  Sex: Female

DRUGS (8)
  1. XIGRIS [Suspect]
     Dates: start: 20060717, end: 20060719
  2. CYMEVAN (GANCICLOVIR SODIUM) [Concomitant]
  3. WELLVONE (ATOVAQUONE) [Concomitant]
  4. PROGRAF /USA/ (TACROLIMUS) [Concomitant]
  5. BACTRIM [Concomitant]
  6. IMURAN [Concomitant]
  7. CEFIXIME CHEWABLE [Concomitant]
  8. CORTICOSTEROIDS [Concomitant]

REACTIONS (10)
  - BRADYCARDIA [None]
  - BRAIN DEATH [None]
  - HAEMODYNAMIC INSTABILITY [None]
  - LIVER DISORDER [None]
  - MULTI-ORGAN FAILURE [None]
  - NERVOUS SYSTEM DISORDER [None]
  - RENAL DISORDER [None]
  - RESPIRATORY DISORDER [None]
  - RHABDOMYOLYSIS [None]
  - VENTRICULAR TACHYCARDIA [None]
